FAERS Safety Report 21843350 (Version 1)
Quarter: 2023Q1

REPORT INFORMATION
  Report Type: Spontaneous
  Country: US (occurrence: US)
  Receive Date: 20230110
  Receipt Date: 20230110
  Transmission Date: 20230417
  Serious: Yes (Hospitalization)
  Sender: FDA-Public Use
  Company Number: US-PARI RESPIRATORY EQUIPMENT, INC.-2022PAR00040

PATIENT
  Sex: Male

DRUGS (2)
  1. KITABIS PAK [Suspect]
     Active Substance: TOBRAMYCIN
     Indication: Bronchiectasis
     Dosage: 300 MG/5 ML  VIA NEBULIZER, EVERY 12 HOURS FOR CYCLE OF 28 DAYS ON AND 28 DAYS OFF. MUST USE LC PLUS
     Dates: start: 20220301
  2. KITABIS PAK [Suspect]
     Active Substance: TOBRAMYCIN
     Indication: Infective exacerbation of bronchiectasis

REACTIONS (2)
  - Haemoptysis [Unknown]
  - Off label use [Not Recovered/Not Resolved]

NARRATIVE: CASE EVENT DATE: 20220101
